FAERS Safety Report 12432397 (Version 1)
Quarter: 2016Q2

REPORT INFORMATION
  Report Type: Spontaneous
  Country: US (occurrence: None)
  Receive Date: 20160602
  Receipt Date: 20160602
  Transmission Date: 20160815
  Serious: No
  Sender: FDA-Public Use
  Company Number: None

PATIENT
  Sex: Female
  Weight: 79.38 kg

DRUGS (7)
  1. VITAMIN C [Concomitant]
     Active Substance: ASCORBIC ACID
  2. ZESTRIL [Concomitant]
     Active Substance: LISINOPRIL
  3. FISH OIL [Concomitant]
     Active Substance: FISH OIL
  4. CALCIUM [Concomitant]
     Active Substance: CALCIUM
  5. CIPROFLOXACIN HCL 500 MG TAB [Suspect]
     Active Substance: CIPROFLOXACIN HYDROCHLORIDE
     Indication: DIVERTICULUM
     Route: 048
     Dates: start: 20150806
  6. MULTY VIT [Concomitant]
  7. NORVAC [Concomitant]
     Active Substance: AMLODIPINE BESYLATE

REACTIONS (5)
  - Muscle disorder [None]
  - Syncope [None]
  - Gait disturbance [None]
  - Dizziness [None]
  - Arthralgia [None]
